FAERS Safety Report 15844428 (Version 1)
Quarter: 2019Q1

REPORT INFORMATION
  Report Type: Not Available
  Country: US (occurrence: US)
  Receive Date: 20190118
  Receipt Date: 20190118
  Transmission Date: 20190417
  Serious: Yes (Other)
  Sender: FDA-Public Use
  Company Number: US-ANIPHARMA-2019-US-000720

PATIENT
  Age: 55 Year
  Sex: Female

DRUGS (10)
  1. ANASTROZOLE. [Suspect]
     Active Substance: ANASTROZOLE
     Indication: BREAST CANCER
     Dosage: UNK
     Route: 048
     Dates: start: 2013
  2. XGEVA [Concomitant]
     Active Substance: DENOSUMAB
     Dosage: UNK
     Route: 065
  3. MS CONTIN [Concomitant]
     Active Substance: MORPHINE SULFATE
     Dosage: 100 MG BID
     Route: 065
  4. DURAGESIC [Concomitant]
     Active Substance: FENTANYL
     Dosage: UNKNOWN
     Route: 061
  5. NORCO [Concomitant]
     Active Substance: ACETAMINOPHEN\HYDROCODONE BITARTRATE
     Dosage: 10MG QID
     Route: 065
  6. FASLODEX [Suspect]
     Active Substance: FULVESTRANT
     Dosage: UNK
     Route: 065
  7. METOPROLOL SUCCINATE ER [Suspect]
     Active Substance: METOPROLOL SUCCINATE
     Dosage: UNK
     Route: 065
  8. OMEPRAZOLE. [Suspect]
     Active Substance: OMEPRAZOLE
     Dosage: UNK
     Route: 065
  9. IBRANCE [Suspect]
     Active Substance: PALBOCICLIB
  10. FASLODEX [Suspect]
     Active Substance: FULVESTRANT
     Dosage: UNK
     Route: 065

REACTIONS (11)
  - Positron emission tomogram abnormal [Unknown]
  - Metastases to bone [Unknown]
  - Hallucination [Unknown]
  - Pulmonary mass [Unknown]
  - Blast cells present [Unknown]
  - Pubis fracture [Unknown]
  - Bone pain [Unknown]
  - Constipation [Unknown]
  - Tremor [Unknown]
  - Disease progression [Unknown]
  - Metastases to bone [Unknown]

NARRATIVE: CASE EVENT DATE: 2013
